FAERS Safety Report 23707835 (Version 3)
Quarter: 2024Q2

REPORT INFORMATION
  Report Type: Spontaneous
  Country: US (occurrence: US)
  Receive Date: 20240404
  Receipt Date: 20240411
  Transmission Date: 20240715
  Serious: Yes (Other)
  Sender: FDA-Public Use
  Company Number: US-PFIZER INC-PV202400043536

PATIENT
  Age: 65 Year
  Sex: Male

DRUGS (5)
  1. MINOXIDIL [Suspect]
     Active Substance: MINOXIDIL
     Indication: Hypertension
     Dosage: UNK
  2. AMLODIPINE [Concomitant]
     Active Substance: AMLODIPINE BESYLATE
     Dosage: UNK
  3. HYDRALAZINE [Concomitant]
     Active Substance: HYDRALAZINE HYDROCHLORIDE
     Dosage: UNK
  4. ATORVASTATIN [Concomitant]
     Active Substance: ATORVASTATIN
     Dosage: UNK
  5. ALLOPURINOL [Concomitant]
     Active Substance: ALLOPURINOL
     Dosage: UNK

REACTIONS (4)
  - Pleuropericarditis [Recovering/Resolving]
  - Pericardial effusion [Recovered/Resolved]
  - Pleural effusion [Recovered/Resolved]
  - Orthostatic hypotension [Recovering/Resolving]
